FAERS Safety Report 15074662 (Version 1)
Quarter: 2018Q2

REPORT INFORMATION
  Report Type: Spontaneous
  Country: US (occurrence: US)
  Receive Date: 20180627
  Receipt Date: 20180627
  Transmission Date: 20180711
  Serious: Yes (Other)
  Sender: FDA-Public Use
  Company Number: US-SAOL THERAPEUTICS-2017SAO01112

PATIENT
  Age: 30 Year
  Sex: Male
  Weight: 68.48 kg

DRUGS (2)
  1. BACLOFEN. [Suspect]
     Active Substance: BACLOFEN
     Indication: MUSCLE SPASTICITY
     Dosage: 217.8 ?G, \DAY
     Route: 037
  2. BACLOFEN. [Suspect]
     Active Substance: BACLOFEN
     Indication: BRAIN INJURY

REACTIONS (3)
  - Hypertonia [Unknown]
  - Pruritus [Unknown]
  - Device failure [Unknown]

NARRATIVE: CASE EVENT DATE: 20170622
